FAERS Safety Report 10017427 (Version 1)
Quarter: 2014Q1

REPORT INFORMATION
  Report Type: Spontaneous
  Country: US (occurrence: US)
  Receive Date: 20140318
  Receipt Date: 20140318
  Transmission Date: 20141002
  Serious: No
  Sender: FDA-Public Use
  Company Number: US-PFIZER INC-2014073354

PATIENT
  Age: 62 Year
  Sex: Female
  Weight: 62.59 kg

DRUGS (3)
  1. PROTONIX [Suspect]
     Indication: GASTROOESOPHAGEAL REFLUX DISEASE
     Dosage: 40 MG, DAILY
  2. HYDROCHLOROTHIAZIDE/LOSARTAN [Concomitant]
     Indication: HYPERTENSION
     Dosage: 160MG LOSARTAN/12.5MG HYDROCHLOROTHIAZIDE, DAILY
  3. ASPIRIN [Concomitant]
     Dosage: UNK

REACTIONS (2)
  - Incorrect product storage [Unknown]
  - Drug ineffective [Unknown]
